FAERS Safety Report 8748123 (Version 3)
Quarter: 2013Q3

REPORT INFORMATION
  Report Type: Spontaneous
  Country: US (occurrence: US)
  Receive Date: 20120827
  Receipt Date: 20130919
  Transmission Date: 20140515
  Serious: Yes (Other)
  Sender: FDA-Public Use
  Company Number: US-BAYER-2012-085457

PATIENT
  Age: 33 Year
  Sex: Female
  Weight: 94.74 kg

DRUGS (1)
  1. MIRENA [Suspect]
     Indication: CONTRACEPTION
     Dosage: 20 MCG/24HR, CONT
     Route: 015
     Dates: start: 20110307, end: 20120817

REACTIONS (7)
  - Amenorrhoea [None]
  - Genital haemorrhage [None]
  - Uterine haemorrhage [None]
  - Menorrhagia [None]
  - Back pain [None]
  - Ectopic pregnancy with contraceptive device [None]
  - Drug ineffective [None]
